FAERS Safety Report 9669969 (Version 1)
Quarter: 2013Q4

REPORT INFORMATION
  Report Type: Spontaneous
  Country: US (occurrence: None)
  Receive Date: 20131104
  Receipt Date: 20131104
  Transmission Date: 20140711
  Serious: Yes (Life-Threatening)
  Sender: FDA-Public Use
  Company Number: 2013P1020729

PATIENT
  Age: 51 Year
  Sex: Female

DRUGS (2)
  1. HYDROXYCHLOROQUINE [Suspect]
     Route: 048
  2. OXYCODONE/ACETAMINOPHEN [Suspect]
     Route: 048

REACTIONS (6)
  - Somnolence [None]
  - Overdose [None]
  - Ventricular fibrillation [None]
  - Cardiac arrest [None]
  - Toxicity to various agents [None]
  - Blood pressure decreased [None]
